FAERS Safety Report 11115383 (Version 1)
Quarter: 2015Q2

REPORT INFORMATION
  Report Type: Spontaneous
  Country: CH (occurrence: CH)
  Receive Date: 20150515
  Receipt Date: 20150515
  Transmission Date: 20150821
  Serious: Yes (Life-Threatening, Hospitalization)
  Sender: FDA-Public Use
  Company Number: CH-ASTRAZENECA-2015SE42757

PATIENT
  Age: 31453 Day
  Sex: Male
  Weight: 78 kg

DRUGS (19)
  1. DILZEM-RR [Interacting]
     Active Substance: DILTIAZEM HYDROCHLORIDE
     Indication: ATRIAL FIBRILLATION
     Route: 048
     Dates: start: 20150411, end: 20150414
  2. ATROVENT [Concomitant]
     Active Substance: IPRATROPIUM BROMIDE
     Indication: CHRONIC OBSTRUCTIVE PULMONARY DISEASE
     Route: 055
  3. DILZEM-RR [Interacting]
     Active Substance: DILTIAZEM HYDROCHLORIDE
     Indication: ATRIAL FIBRILLATION
     Dosage: DILTIAZEM 240 MG/DAY
     Route: 048
  4. ATORVASTATIN [Concomitant]
     Active Substance: ATORVASTATIN
     Indication: HYPERCHOLESTEROLAEMIA
     Route: 048
  5. ZYLORIC [Concomitant]
     Active Substance: ALLOPURINOL
     Indication: GOUT
     Route: 048
  6. TORASEMIDE [Concomitant]
     Active Substance: TORSEMIDE
  7. BELOC ZOK [Suspect]
     Active Substance: METOPROLOL SUCCINATE
     Indication: ATRIAL FIBRILLATION
     Route: 048
     Dates: start: 20150414, end: 20150414
  8. MICARDIS [Interacting]
     Active Substance: TELMISARTAN
     Dosage: TELMISARTAN 40 MG/DAY
     Route: 048
  9. MICARDIS [Interacting]
     Active Substance: TELMISARTAN
     Route: 048
     Dates: start: 20140411, end: 20150414
  10. VENTOLIN [Concomitant]
     Active Substance: ALBUTEROL SULFATE
     Indication: CHRONIC OBSTRUCTIVE PULMONARY DISEASE
     Route: 055
  11. LASIX [Interacting]
     Active Substance: FUROSEMIDE
     Indication: CARDIAC FAILURE
     Route: 040
     Dates: start: 20150410
  12. LASIX [Interacting]
     Active Substance: FUROSEMIDE
     Indication: CARDIAC FAILURE
     Dosage: 20/20/40 MG
     Route: 040
     Dates: start: 20150412
  13. LASIX [Interacting]
     Active Substance: FUROSEMIDE
     Indication: CARDIAC FAILURE
     Route: 040
     Dates: start: 20150411
  14. LASIX [Interacting]
     Active Substance: FUROSEMIDE
     Indication: CARDIAC FAILURE
     Route: 040
     Dates: start: 20150413
  15. LASIX [Interacting]
     Active Substance: FUROSEMIDE
     Indication: CARDIAC FAILURE
     Route: 040
     Dates: start: 20150414, end: 20150414
  16. SINTROM [Concomitant]
     Active Substance: ACENOCOUMAROL
     Indication: ATRIAL FIBRILLATION
     Route: 048
  17. TORASEMIDE [Concomitant]
     Active Substance: TORSEMIDE
  18. DUODART [Interacting]
     Active Substance: DUTASTERIDE\TAMSULOSIN
     Indication: BENIGN PROSTATIC HYPERPLASIA
     Route: 048
  19. DUODART [Interacting]
     Active Substance: DUTASTERIDE\TAMSULOSIN
     Indication: BENIGN PROSTATIC HYPERPLASIA
     Route: 048
     Dates: start: 20150411, end: 20150414

REACTIONS (13)
  - Depressed level of consciousness [Recovered/Resolved]
  - Cardiac flutter [Unknown]
  - Cardiogenic shock [Recovered/Resolved]
  - Hypotension [Recovered/Resolved]
  - Atrioventricular block complete [Recovered/Resolved]
  - Anuria [Recovered/Resolved]
  - Sinus bradycardia [Unknown]
  - Tachycardia [Unknown]
  - Drug interaction [Unknown]
  - Acute kidney injury [Recovered/Resolved]
  - Seizure [Recovered/Resolved]
  - Cardiac disorder [Recovered/Resolved]
  - Bradycardia [Recovered/Resolved]

NARRATIVE: CASE EVENT DATE: 20150413
